FAERS Safety Report 4310228-7 (Version None)
Quarter: 2004Q1

REPORT INFORMATION
  Report Type: 
  Country: None (occurrence: None)
  Receive Date: 20040301
  Receipt Date: 20031217
  Transmission Date: 20041129
  Serious: No
  Sender: FDA-Public Use
  Company Number: WAES 0312USA02709

PATIENT
  Sex: 0

DRUGS (2)
  1. ZETIA [Suspect]
     Dosage: PO
     Route: 048
  2. PREDNISONE [Concomitant]

REACTIONS (2)
  - MUSCLE CRAMP [None]
  - MYALGIA [None]
